FAERS Safety Report 9875898 (Version 2)
Quarter: 2014Q1

REPORT INFORMATION
  Report Type: Spontaneous
  Country: IT (occurrence: None)
  Receive Date: 20140204
  Receipt Date: 20140212
  Transmission Date: 20141002
  Serious: Yes (Hospitalization)
  Sender: FDA-Public Use
  Company Number: AUR-APL-2014-00979

PATIENT
  Age: 79 Year
  Sex: Male

DRUGS (5)
  1. VALSARTAN /HYDROCHLOROTHIAZIDE [Suspect]
     Indication: HYPERTENSION
     Route: 048
  2. CIPROFLOXACIN (CIPROFLOXACIN) [Suspect]
     Indication: BRONCHITIS
     Dosage: 1 TABLET
     Route: 048
     Dates: start: 20131107, end: 20131112
  3. PARACETAMOL (PARACETAMOL) [Concomitant]
  4. TAMSULOSIN HYDROCHLORIDE (TAMSULOSIN) [Concomitant]
  5. TAVANIC [Suspect]
     Dosage: (500 MG,1 D)
     Route: 048
     Dates: start: 20131113, end: 20131119

REACTIONS (4)
  - Bronchitis [None]
  - Renal failure acute [None]
  - Hypotension [None]
  - Urinary retention [None]
